FAERS Safety Report 6748385-5 (Version None)
Quarter: 2010Q2

REPORT INFORMATION
  Report Type: 
  Country: None (occurrence: None)
  Receive Date: 20100601
  Receipt Date: 20100517
  Transmission Date: 20101027
  Serious: Yes (Other)
  Sender: FDA-Public Use
  Company Number: US-ASTRAZENECA-2008UW07365

PATIENT
  Sex: Male
  Weight: 97.5 kg

DRUGS (4)
  1. SEROQUEL [Suspect]
     Route: 048
     Dates: start: 20040630
  2. NAPROXEN [Concomitant]
     Indication: PAIN
  3. VERAPAMIL [Concomitant]
     Dates: start: 20040630
  4. PAXIL CR [Concomitant]

REACTIONS (3)
  - DIABETES MELLITUS [None]
  - NEUROPATHY PERIPHERAL [None]
  - TYPE 2 DIABETES MELLITUS [None]
